FAERS Safety Report 8146469 (Version 3)
Quarter: 2013Q4

REPORT INFORMATION
  Report Type: Report from Study
  Country: CA (occurrence: CA)
  Receive Date: 20110921
  Receipt Date: 20131018
  Transmission Date: 20140711
  Serious: Yes (Hospitalization)
  Sender: FDA-Public Use
  Company Number: CA-ASTRAZENECA-2011SE38492

PATIENT
  Age: 25682 Day
  Sex: Male

DRUGS (10)
  1. AZD6140 [Suspect]
     Indication: CORONARY ARTERY DISEASE
     Route: 048
     Dates: start: 20110609, end: 20110609
  2. STUDY PROCEDURE [Suspect]
     Indication: CORONARY ARTERY DISEASE
     Route: 065
  3. COD LIVER OIL [Concomitant]
     Indication: SUPPLEMENTATION THERAPY
     Route: 048
  4. VITALUX [Concomitant]
     Indication: SUPPLEMENTATION THERAPY
     Route: 048
  5. VITAMIN E [Concomitant]
     Indication: VITAMIN SUPPLEMENTATION
     Route: 048
  6. ATORVASTATIN [Concomitant]
     Indication: DYSLIPIDAEMIA
     Route: 048
  7. VITAMIN C [Concomitant]
     Indication: VITAMIN SUPPLEMENTATION
     Route: 048
  8. ASA [Concomitant]
     Route: 048
  9. PANTOLOC [Concomitant]
     Indication: PEPTIC ULCER
     Route: 048
     Dates: start: 20110619
  10. AMOXIL [Concomitant]
     Indication: PNEUMONIA ASPIRATION
     Route: 048
     Dates: start: 20110613, end: 20110620

REACTIONS (1)
  - Catheter site haemorrhage [Recovered/Resolved]
